FAERS Safety Report 17511473 (Version 1)
Quarter: 2020Q1

REPORT INFORMATION
  Report Type: Report from Study
  Country: CA (occurrence: CA)
  Receive Date: 20200306
  Receipt Date: 20200306
  Transmission Date: 20200409
  Serious: Yes (Other)
  Sender: FDA-Public Use
  Company Number: NVSC2020CA060763

PATIENT
  Sex: Male

DRUGS (1)
  1. ERELZI [Suspect]
     Active Substance: ETANERCEPT-SZZS
     Indication: PSORIATIC ARTHROPATHY
     Dosage: 50 MG, QW
     Route: 058
     Dates: start: 20200213

REACTIONS (11)
  - Necrosis [Unknown]
  - Infection [Unknown]
  - Arthritis [Unknown]
  - Synovial disorder [Unknown]
  - Renal vasculitis [Unknown]
  - Synovitis [Unknown]
  - Arthralgia [Unknown]
  - Joint swelling [Unknown]
  - Amyloidosis [Unknown]
  - Tinea manuum [Unknown]
  - Tenderness [Unknown]
